FAERS Safety Report 5448549-7 (Version None)
Quarter: 2007Q3

REPORT INFORMATION
  Report Type: 
  Country: None (occurrence: None)
  Receive Date: 20070911
  Receipt Date: 20070831
  Transmission Date: 20080115
  Serious: Yes (Hospitalization, Disabling, Other)
  Sender: FDA-Public Use
  Company Number: US-ELI_LILLY_AND_COMPANY-US200709000245

PATIENT
  Age: 64 Year
  Sex: Male

DRUGS (6)
  1. HUMULIN 70/30 [Suspect]
     Dates: start: 19950101, end: 20070701
  2. HUMULIN N [Suspect]
     Dates: start: 20070701
  3. HUMALOG [Suspect]
     Dosage: UNK, UNK
     Dates: start: 20070701
  4. GLUCOPHAGE [Concomitant]
     Dosage: 500 MG, 4/D
  5. GLUCOPHAGE [Concomitant]
     Dosage: UNK, DAILY (1/D)
     Dates: start: 20061201
  6. EFFEXOR [Concomitant]
     Dates: end: 20061201

REACTIONS (21)
  - ABDOMINAL DISTENSION [None]
  - AUTONOMIC NEUROPATHY [None]
  - BLOOD GLUCOSE INCREASED [None]
  - BLOOD PRESSURE INCREASED [None]
  - BRAIN DAMAGE [None]
  - CEREBROVASCULAR ACCIDENT [None]
  - CORONARY ARTERY OCCLUSION [None]
  - DEPRESSION [None]
  - DIARRHOEA [None]
  - DYSARTHRIA [None]
  - DYSPHAGIA [None]
  - FEELING ABNORMAL [None]
  - HYPOXIC ENCEPHALOPATHY [None]
  - INSULIN RESISTANCE [None]
  - MALAISE [None]
  - MYOCLONIC EPILEPSY [None]
  - OEDEMA PERIPHERAL [None]
  - PAIN [None]
  - SLEEP APNOEA SYNDROME [None]
  - SPEECH DISORDER [None]
  - TRANSIENT ISCHAEMIC ATTACK [None]
